FAERS Safety Report 11776916 (Version 2)
Quarter: 2015Q4

REPORT INFORMATION
  Report Type: Spontaneous
  Country: IT (occurrence: IT)
  Receive Date: 20151125
  Receipt Date: 20151204
  Transmission Date: 20160304
  Serious: Yes (Hospitalization)
  Sender: FDA-Public Use
  Company Number: IT-WATSON-2015-24739

PATIENT
  Age: 53 Year
  Sex: Male

DRUGS (2)
  1. LORAZEPAM. [Suspect]
     Active Substance: LORAZEPAM
     Indication: DRUG ABUSE
     Dosage: 10 MG, TOTAL
     Route: 048
     Dates: start: 20150908, end: 20150908
  2. SINTROM [Suspect]
     Active Substance: ACENOCOUMAROL
     Indication: DRUG ABUSE
     Dosage: 15 DF, TOTAL
     Route: 048
     Dates: start: 20150908, end: 20150908

REACTIONS (1)
  - Drug abuse [Recovered/Resolved]

NARRATIVE: CASE EVENT DATE: 20150908
